FAERS Safety Report 24769549 (Version 1)
Quarter: 2024Q4

REPORT INFORMATION
  Report Type: Spontaneous
  Country: US (occurrence: None)
  Receive Date: 20241223
  Receipt Date: 20241223
  Transmission Date: 20250115
  Serious: No
  Sender: Public
  Company Number: None

PATIENT
  Age: 40 Year
  Sex: Female

DRUGS (1)
  1. BIKTARVY [Suspect]
     Active Substance: BICTEGRAVIR SODIUM\EMTRICITABINE\TENOFOVIR ALAFENAMIDE FUMARATE
     Dosage: 50/200/25 MG DAILY ORAL ?
     Route: 048

REACTIONS (3)
  - Nausea [None]
  - Vomiting [None]
  - Weight increased [None]

NARRATIVE: CASE EVENT DATE: 20241123
